FAERS Safety Report 9091464 (Version 3)
Quarter: 2013Q1

REPORT INFORMATION
  Report Type: Spontaneous
  Country: SA (occurrence: SA)
  Receive Date: 20130131
  Receipt Date: 20130328
  Transmission Date: 20140127
  Serious: Yes (Other)
  Sender: FDA-Public Use
  Company Number: SA-ROCHE-1184291

PATIENT
  Age: 24 Year
  Sex: Female
  Weight: 76 kg

DRUGS (2)
  1. ROACCUTANE [Suspect]
     Indication: ACNE CONGLOBATA
     Route: 048
     Dates: start: 201210, end: 20130104
  2. BACTROBAN [Concomitant]
     Route: 065

REACTIONS (2)
  - Blood triglycerides increased [Unknown]
  - Exposure during pregnancy [Unknown]
